FAERS Safety Report 19999779 (Version 2)
Quarter: 2021Q4

REPORT INFORMATION
  Report Type: Report from Study
  Country: DE (occurrence: DE)
  Receive Date: 20211026
  Receipt Date: 20211203
  Transmission Date: 20220303
  Serious: Yes (Hospitalization, Other)
  Sender: FDA-Public Use
  Company Number: DE-TAKEDA-2021TUS063772

PATIENT
  Age: 7 Year
  Sex: Female

DRUGS (28)
  1. TEDUGLUTIDE [Suspect]
     Active Substance: TEDUGLUTIDE
     Indication: Short-bowel syndrome
     Dosage: 0.45 MILLIGRAM, QD
     Route: 065
     Dates: start: 20171020, end: 20180309
  2. TEDUGLUTIDE [Suspect]
     Active Substance: TEDUGLUTIDE
     Indication: Short-bowel syndrome
     Dosage: 0.45 MILLIGRAM, QD
     Route: 065
     Dates: start: 20171020, end: 20180309
  3. TEDUGLUTIDE [Suspect]
     Active Substance: TEDUGLUTIDE
     Indication: Short-bowel syndrome
     Dosage: 0.45 MILLIGRAM, QD
     Route: 065
     Dates: start: 20171020, end: 20180309
  4. TEDUGLUTIDE [Suspect]
     Active Substance: TEDUGLUTIDE
     Indication: Short-bowel syndrome
     Dosage: 0.45 MILLIGRAM, QD
     Route: 065
     Dates: start: 20171020, end: 20180309
  5. TEDUGLUTIDE [Suspect]
     Active Substance: TEDUGLUTIDE
     Dosage: 0.6 MILLIGRAM, QD
     Route: 065
     Dates: start: 20190218, end: 20190702
  6. TEDUGLUTIDE [Suspect]
     Active Substance: TEDUGLUTIDE
     Dosage: 0.6 MILLIGRAM, QD
     Route: 065
     Dates: start: 20190218, end: 20190702
  7. TEDUGLUTIDE [Suspect]
     Active Substance: TEDUGLUTIDE
     Dosage: 0.6 MILLIGRAM, QD
     Route: 065
     Dates: start: 20190218, end: 20190702
  8. TEDUGLUTIDE [Suspect]
     Active Substance: TEDUGLUTIDE
     Dosage: 0.6 MILLIGRAM, QD
     Route: 065
     Dates: start: 20190218, end: 20190702
  9. TEDUGLUTIDE [Suspect]
     Active Substance: TEDUGLUTIDE
     Dosage: 0.550 MILLIGRAM, QD
     Route: 065
     Dates: start: 20180310, end: 20190217
  10. TEDUGLUTIDE [Suspect]
     Active Substance: TEDUGLUTIDE
     Dosage: 0.550 MILLIGRAM, QD
     Route: 065
     Dates: start: 20180310, end: 20190217
  11. TEDUGLUTIDE [Suspect]
     Active Substance: TEDUGLUTIDE
     Dosage: 0.550 MILLIGRAM, QD
     Route: 065
     Dates: start: 20180310, end: 20190217
  12. TEDUGLUTIDE [Suspect]
     Active Substance: TEDUGLUTIDE
     Dosage: 0.550 MILLIGRAM, QD
     Route: 065
     Dates: start: 20180310, end: 20190217
  13. TEDUGLUTIDE [Suspect]
     Active Substance: TEDUGLUTIDE
     Dosage: 0.65 MILLIGRAM, QD
     Route: 065
     Dates: start: 20190703, end: 20200105
  14. TEDUGLUTIDE [Suspect]
     Active Substance: TEDUGLUTIDE
     Dosage: 0.65 MILLIGRAM, QD
     Route: 065
     Dates: start: 20190703, end: 20200105
  15. TEDUGLUTIDE [Suspect]
     Active Substance: TEDUGLUTIDE
     Dosage: 0.65 MILLIGRAM, QD
     Route: 065
     Dates: start: 20190703, end: 20200105
  16. TEDUGLUTIDE [Suspect]
     Active Substance: TEDUGLUTIDE
     Dosage: 0.65 MILLIGRAM, QD
     Route: 065
     Dates: start: 20190703, end: 20200105
  17. TEDUGLUTIDE [Suspect]
     Active Substance: TEDUGLUTIDE
     Dosage: 0.62 MILLIGRAM, QD
     Route: 065
     Dates: start: 20200106, end: 20200904
  18. TEDUGLUTIDE [Suspect]
     Active Substance: TEDUGLUTIDE
     Dosage: 0.62 MILLIGRAM, QD
     Route: 065
     Dates: start: 20200106, end: 20200904
  19. TEDUGLUTIDE [Suspect]
     Active Substance: TEDUGLUTIDE
     Dosage: 0.62 MILLIGRAM, QD
     Route: 065
     Dates: start: 20200106, end: 20200904
  20. TEDUGLUTIDE [Suspect]
     Active Substance: TEDUGLUTIDE
     Dosage: 0.62 MILLIGRAM, QD
     Route: 065
     Dates: start: 20200106, end: 20200904
  21. TEDUGLUTIDE [Suspect]
     Active Substance: TEDUGLUTIDE
     Dosage: 0.75 MILLIGRAM, QD
     Route: 065
     Dates: start: 20200905
  22. TEDUGLUTIDE [Suspect]
     Active Substance: TEDUGLUTIDE
     Dosage: 0.75 MILLIGRAM, QD
     Route: 065
     Dates: start: 20200905
  23. TEDUGLUTIDE [Suspect]
     Active Substance: TEDUGLUTIDE
     Dosage: 0.75 MILLIGRAM, QD
     Route: 065
     Dates: start: 20200905
  24. TEDUGLUTIDE [Suspect]
     Active Substance: TEDUGLUTIDE
     Dosage: 0.75 MILLIGRAM, QD
     Route: 065
     Dates: start: 20200905
  25. VITAMIN B12 [Concomitant]
     Active Substance: CYANOCOBALAMIN
     Indication: Vitamin B12 deficiency
     Dosage: 4 GTT DROPS, QD
     Route: 048
     Dates: start: 20200904
  26. FERRLECIT [Concomitant]
     Active Substance: SODIUM FERRIC GLUCONATE COMPLEX
     Indication: Iron deficiency
     Dosage: UNK
     Route: 042
     Dates: start: 20200106, end: 20200106
  27. FERROUS GLUCONATE [Concomitant]
     Active Substance: FERROUS GLUCONATE
     Indication: Nutritional supplementation
     Dosage: 10 GTT DROPS, TID
     Route: 048
     Dates: start: 20190702
  28. NEXIUM [Concomitant]
     Active Substance: ESOMEPRAZOLE MAGNESIUM
     Indication: Gastrointestinal disorder
     Dosage: 10 MILLIGRAM, QD
     Route: 048
     Dates: start: 20190703

REACTIONS (7)
  - Iron deficiency anaemia [Recovered/Resolved]
  - Anastomotic ulcer [Recovered/Resolved]
  - Dwarfism [Recovered/Resolved]
  - Malabsorption [Recovered/Resolved]
  - Granuloma [Recovered/Resolved]
  - Muscular dystrophy [Recovered/Resolved]
  - Malnutrition [Recovered/Resolved]

NARRATIVE: CASE EVENT DATE: 20210803
